FAERS Safety Report 18429484 (Version 2)
Quarter: 2020Q4

REPORT INFORMATION
  Report Type: Spontaneous
  Country: FR (occurrence: FR)
  Receive Date: 20201027
  Receipt Date: 20201105
  Transmission Date: 20210114
  Serious: Yes (Hospitalization, Other)
  Sender: FDA-Public Use
  Company Number: FR-AUROBINDO-AUR-APL-2020-053561

PATIENT
  Age: 39 Year
  Sex: Male

DRUGS (10)
  1. CYCLOSPORINE. [Suspect]
     Active Substance: CYCLOSPORINE
     Indication: PROPHYLAXIS AGAINST GRAFT VERSUS HOST DISEASE
     Dosage: 250 MILLIGRAM, ONCE A DAY
     Route: 065
  2. METHOTREXATE. [Suspect]
     Active Substance: METHOTREXATE
     Indication: PROPHYLAXIS AGAINST GRAFT VERSUS HOST DISEASE
     Dosage: UNK
     Route: 037
  3. VALACICLOVIR [Suspect]
     Active Substance: VALACYCLOVIR HYDROCHLORIDE
     Indication: ANTIVIRAL PROPHYLAXIS
     Dosage: UNK
     Route: 065
  4. CYCLOPHOSPHAMIDE. [Suspect]
     Active Substance: CYCLOPHOSPHAMIDE
     Indication: BONE MARROW CONDITIONING REGIMEN
     Dosage: UNK
     Route: 065
  5. METHOTREXATE. [Suspect]
     Active Substance: METHOTREXATE
     Dosage: HIGH DOSE
     Route: 042
  6. PREDNISONE. [Suspect]
     Active Substance: PREDNISONE
     Indication: IMMUNOSUPPRESSION
     Dosage: 50 MILLIGRAM, ONCE A DAY
     Route: 065
  7. RITUXIMAB. [Suspect]
     Active Substance: RITUXIMAB
     Dosage: 375 MILLIGRAM/SQ. METER, EVERY WEEK (375 MILLIGRAM/SQ. METER, QW 4 SUBSEQUENT WEEKLY COURSES)
     Route: 065
     Dates: start: 200412
  8. RITUXIMAB. [Suspect]
     Active Substance: RITUXIMAB
     Indication: EPSTEIN-BARR VIRUS INFECTION REACTIVATION
     Dosage: 375 MILLIGRAM/SQ. METER, ONCE A DAY
     Route: 037
  9. FLUDARABINE [Suspect]
     Active Substance: FLUDARABINE PHOSPHATE
     Indication: BONE MARROW CONDITIONING REGIMEN
     Dosage: UNK
     Route: 065
  10. THYMOGLOBULINE [Suspect]
     Active Substance: LAPINE T-LYMPHOCYTE IMMUNE GLOBULIN
     Indication: BONE MARROW CONDITIONING REGIMEN
     Dosage: UNK
     Route: 065

REACTIONS (3)
  - Abscess [Unknown]
  - Seizure [Unknown]
  - Post transplant lymphoproliferative disorder [Recovered/Resolved]
